FAERS Safety Report 8473885-X (Version None)
Quarter: 2012Q2

REPORT INFORMATION
  Report Type: 
  Country: None (occurrence: None)
  Receive Date: 20120621
  Receipt Date: 20120606
  Transmission Date: 20120825
  Serious: Yes (Death, Other)
  Sender: FDA-Public Use
  Company Number: US-2012-10718

PATIENT
  Age: 5 Year

DRUGS (11)
  1. IMMUNOGLOBINE G HUMAN (IMMUNOGLOBIN G HUMAN) [Concomitant]
  2. CLOTRIMAZOLE [Concomitant]
  3. N-ACETYLCYSTEINE (N-ACETYLCYSTEINE) [Concomitant]
  4. FLUCONAZOLE [Concomitant]
  5. FLUDARABINE PHOSPHATE [Suspect]
     Indication: BONE MARROW CONDITIONING REGIMEN
     Dosage: SEE IMAGE
     Route: 051
  6. ALEMTUZUMAB (ALEMTUZUMAB) [Suspect]
     Indication: BONE MARROW CONDITIONING REGIMEN
     Dosage: 0.5 MG/KG, DAILY DOSE, PARENTERAL
     Route: 051
  7. METHOTREXATE SODIUM [Concomitant]
  8. CYCLOSPORINE [Concomitant]
  9. BUSULFAN [Suspect]
     Indication: BONE MARROW CONDITIONING REGIMEN
     Dosage: 16 DOSES, EVERY 6 HOURS, INTRAVENOUS
     Route: 042
  10. LORAZEPAM [Concomitant]
  11. ACYCLOVIR [Concomitant]

REACTIONS (2)
  - HAEMORRHAGE [None]
  - THROMBOCYTOPENIA [None]
